FAERS Safety Report 21686042 (Version 3)
Quarter: 2023Q4

REPORT INFORMATION
  Report Type: Other
  Country: US (occurrence: None)
  Receive Date: 20221206
  Receipt Date: 20231031
  Transmission Date: 20240109
  Serious: Yes (Other)
  Sender: FDA-Public Use
  Company Number: US-ROCHE-3229737

PATIENT
  Age: 57 Year
  Sex: Female

DRUGS (5)
  1. OCREVUS [Suspect]
     Active Substance: OCRELIZUMAB
     Indication: Relapsing multiple sclerosis
     Dosage: ONGOING UNKNOWN; DOT: 11/18/2020, 5/19/2021, 18/MAY/2020, 21/OCT/2019, 04/NOV/2019, 17/NOV/2021
     Route: 065
     Dates: start: 20191021
  2. OCREVUS [Suspect]
     Active Substance: OCRELIZUMAB
     Route: 042
  3. BENZONATATE [Concomitant]
     Active Substance: BENZONATATE
  4. DELSYM [Concomitant]
     Active Substance: DEXTROMETHORPHAN
  5. DOXYCYCLINE [Concomitant]
     Active Substance: DOXYCYCLINE

REACTIONS (9)
  - Urinary tract infection [Unknown]
  - Pneumonia [Not Recovered/Not Resolved]
  - Cardiac failure chronic [Unknown]
  - Urinary tract infection [Unknown]
  - B-lymphocyte count decreased [Not Recovered/Not Resolved]
  - COVID-19 [Unknown]
  - Influenza [Not Recovered/Not Resolved]
  - Immunosuppression [Unknown]
  - Off label use [Unknown]

NARRATIVE: CASE EVENT DATE: 20210501
